FAERS Safety Report 6942384-6 (Version None)
Quarter: 2010Q3

REPORT INFORMATION
  Report Type: 
  Country: None (occurrence: None)
  Receive Date: 20100826
  Receipt Date: 20100812
  Transmission Date: 20110219
  Serious: Yes (Other)
  Sender: FDA-Public Use
  Company Number: PHHY2010US53262

PATIENT
  Sex: Male

DRUGS (2)
  1. EXFORGE [Suspect]
     Dosage: 320/10 MG
     Route: 048
  2. EXFORGE [Suspect]
     Dosage: 160/5 MG
     Route: 048

REACTIONS (2)
  - BLOOD PRESSURE DECREASED [None]
  - LYMPHOMA [None]
